FAERS Safety Report 22105952 (Version 1)
Quarter: 2023Q1

REPORT INFORMATION
  Report Type: Spontaneous
  Country: US (occurrence: US)
  Receive Date: 20230317
  Receipt Date: 20230317
  Transmission Date: 20230417
  Serious: No
  Sender: FDA-Public Use
  Company Number: US-SANOFI-01525912

PATIENT
  Age: 50 Year
  Sex: Female

DRUGS (32)
  1. DUPIXENT [Suspect]
     Active Substance: DUPILUMAB
     Indication: Dermatitis atopic
     Dosage: 600 MG, 1X
     Dates: start: 20230223, end: 20230223
  2. DUPIXENT [Suspect]
     Active Substance: DUPILUMAB
     Dosage: 300 MG, QOW
  3. GABAPENTIN [Concomitant]
     Active Substance: GABAPENTIN
  4. NABUMETONE [Concomitant]
     Active Substance: NABUMETONE
  5. LITHIUM [Concomitant]
     Active Substance: LITHIUM
  6. ASPIRIN [Concomitant]
     Active Substance: ASPIRIN
  7. CHLORTHALIDONE [Concomitant]
     Active Substance: CHLORTHALIDONE
  8. TRIAMCINOLONE [Concomitant]
     Active Substance: TRIAMCINOLONE
  9. BETAMETHASONE\CLOTRIMAZOLE [Concomitant]
     Active Substance: BETAMETHASONE\CLOTRIMAZOLE
  10. DICLOFENAC [Concomitant]
     Active Substance: DICLOFENAC
  11. NORETHINDRONE [Concomitant]
     Active Substance: NORETHINDRONE
  12. LEVOTHYROXINE [Concomitant]
     Active Substance: LEVOTHYROXINE
  13. CLONIDINE [Concomitant]
     Active Substance: CLONIDINE
  14. TRAZODONE [Concomitant]
     Active Substance: TRAZODONE HYDROCHLORIDE
  15. HYDROXYCHLOROQUINE [Concomitant]
     Active Substance: HYDROXYCHLOROQUINE
  16. BUSPIRONE [Concomitant]
     Active Substance: BUSPIRONE HYDROCHLORIDE
  17. CITALOPRAM [Concomitant]
     Active Substance: CITALOPRAM HYDROBROMIDE
  18. LISINOPRIL [Concomitant]
     Active Substance: LISINOPRIL
  19. CYCLOBENZAPRINE [Concomitant]
     Active Substance: CYCLOBENZAPRINE
  20. LANSOPRAZOLE [Concomitant]
     Active Substance: LANSOPRAZOLE
  21. CLOBETASOL [Concomitant]
     Active Substance: CLOBETASOL
  22. PIMECROLIMUS [Concomitant]
     Active Substance: PIMECROLIMUS
  23. UBRELVY [Concomitant]
     Active Substance: UBROGEPANT
  24. MINERALS\VITAMINS [Concomitant]
     Active Substance: MINERALS\VITAMINS
  25. VITAMIN C [Concomitant]
     Active Substance: ASCORBIC ACID
  26. COENZYME Q10 [Concomitant]
     Active Substance: DIETARY SUPPLEMENT\UBIDECARENONE
  27. IRON [Concomitant]
     Active Substance: IRON
  28. VITAMIN D3 [Concomitant]
     Active Substance: CHOLECALCIFEROL
  29. VISINE [TETRYZOLINE HYDROCHLORIDE] [Concomitant]
     Dosage: 1 DROP, BID
  30. EXCEDRIN MIGRAINE [Concomitant]
     Active Substance: ACETAMINOPHEN\ASPIRIN\CAFFEINE
     Dosage: 200 MG, AS NEEDED
  31. LIDOCAINE [Concomitant]
     Active Substance: LIDOCAINE
     Dosage: PRN
  32. EUCERIN [GLYCINE MAX OIL;RICINUS COMMUNIS OIL] [Concomitant]
     Dosage: BID

REACTIONS (1)
  - Visual impairment [Unknown]
